FAERS Safety Report 11641965 (Version 4)
Quarter: 2016Q1

REPORT INFORMATION
  Report Type: Spontaneous
  Country: JP (occurrence: JP)
  Receive Date: 20151019
  Receipt Date: 20160302
  Transmission Date: 20160525
  Serious: Yes (Hospitalization, Other)
  Sender: FDA-Public Use
  Company Number: JP-CELGENE-JPN-2015104285

PATIENT
  Age: 62 Year
  Sex: Female

DRUGS (2)
  1. LENADEX [Suspect]
     Active Substance: DEXAMETHASONE ACETATE
     Indication: PLASMA CELL MYELOMA
     Route: 048
  2. REVLIMID [Suspect]
     Active Substance: LENALIDOMIDE
     Indication: PLASMA CELL MYELOMA
     Dosage: 5 MILLIGRAM
     Route: 048

REACTIONS (3)
  - Full blood count decreased [Unknown]
  - Constipation [Unknown]
  - Granuloma [Recovered/Resolved]
